FAERS Safety Report 17144953 (Version 2)
Quarter: 2020Q2

REPORT INFORMATION
  Report Type: Report from Study
  Country: US (occurrence: US)
  Receive Date: 20191212
  Receipt Date: 20200501
  Transmission Date: 20200713
  Serious: Yes (Other)
  Sender: FDA-Public Use
  Company Number: US-AUROBINDO-AUR-APL-2019-103926

PATIENT
  Age: 16 Year
  Sex: Female

DRUGS (1)
  1. MINOCYCLINE [Suspect]
     Active Substance: MINOCYCLINE HYDROCHLORIDE
     Indication: ACNE
     Dosage: 150 MILLIGRAM, ONCE A DAY
     Route: 048

REACTIONS (3)
  - Hyperthyroidism [Unknown]
  - Goitre [Recovered/Resolved]
  - Thyroiditis [Recovered/Resolved]
